FAERS Safety Report 7652726-4 (Version None)
Quarter: 2011Q3

REPORT INFORMATION
  Report Type: 
  Country: None (occurrence: None)
  Receive Date: 20110803
  Receipt Date: 20110729
  Transmission Date: 20111222
  Serious: Yes (Life-Threatening, Hospitalization)
  Sender: FDA-Public Use
  Company Number: CA-SANOFI-AVENTIS-2011SA048645

PATIENT
  Age: 71 Year
  Sex: Male

DRUGS (5)
  1. ALLOPURINOL [Concomitant]
  2. PERINDOPRIL ERBUMINE [Concomitant]
  3. PANTOPRAZOLE [Concomitant]
     Dosage: DOSE: 40M EVERY 2 DAY
  4. ELIGARD [Suspect]
     Route: 065
     Dates: start: 20081210
  5. INDAPAMIDE [Concomitant]

REACTIONS (1)
  - CARDIAC FAILURE CONGESTIVE [None]
